FAERS Safety Report 9305882 (Version 1)
Quarter: 2013Q2

REPORT INFORMATION
  Report Type: Spontaneous
  Country: US (occurrence: US)
  Receive Date: 20130523
  Receipt Date: 20130523
  Transmission Date: 20140414
  Serious: No
  Sender: FDA-Public Use
  Company Number: US-PFIZER INC-2013154415

PATIENT
  Age: 56 Year
  Sex: Female
  Weight: 63.49 kg

DRUGS (3)
  1. LEVOXYL [Suspect]
     Indication: GOITRE
     Dosage: 200 UG, 1X/DAY
  2. LEVOXYL [Suspect]
     Dosage: 75 UG, 1X/DAY
  3. LEVOXYL [Suspect]
     Dosage: UNK, 1X/DAY

REACTIONS (1)
  - Blood thyroid stimulating hormone abnormal [Unknown]
